FAERS Safety Report 19729855 (Version 1)
Quarter: 2021Q3

REPORT INFORMATION
  Report Type: Other
  Country: US (occurrence: US)
  Receive Date: 20210820
  Receipt Date: 20210820
  Transmission Date: 20211014
  Serious: Yes (Other)
  Sender: FDA-Public Use
  Company Number: US-APOTEX-2021AP038561

PATIENT
  Age: 65 Year
  Sex: Female

DRUGS (4)
  1. RANITIDINE INJECTION [Suspect]
     Active Substance: RANITIDINE
     Indication: DYSPEPSIA
     Dosage: DAILY
     Route: 065
     Dates: start: 200901, end: 201711
  2. RANITIDINE TABLETS [Suspect]
     Active Substance: RANITIDINE HYDROCHLORIDE
     Indication: DYSPEPSIA
     Dosage: DAILY
     Route: 065
     Dates: start: 200901, end: 201711
  3. RANITIDINE SUSPENSION [Suspect]
     Active Substance: RANITIDINE HYDROCHLORIDE
     Indication: DYSPEPSIA
     Dosage: DAILY
     Route: 065
     Dates: start: 200901, end: 201711
  4. RANITIDINE. [Suspect]
     Active Substance: RANITIDINE
     Indication: DYSPEPSIA
     Dosage: DAILY
     Route: 065
     Dates: start: 200901, end: 201711

REACTIONS (1)
  - Renal cancer [Unknown]

NARRATIVE: CASE EVENT DATE: 20150401
